FAERS Safety Report 6999104-9 (Version None)
Quarter: 2010Q3

REPORT INFORMATION
  Report Type: 
  Country: None (occurrence: None)
  Receive Date: 20100920
  Receipt Date: 20100610
  Transmission Date: 20110219
  Serious: No
  Sender: FDA-Public Use
  Company Number: US-ASTRAZENECA-2010SE27099

PATIENT
  Sex: Female
  Weight: 159.2 kg

DRUGS (2)
  1. SEROQUEL XR [Suspect]
     Indication: MIGRAINE
     Route: 048
     Dates: start: 20090501
  2. SEROQUEL XR [Suspect]
     Indication: ANXIETY
     Route: 048
     Dates: start: 20090501

REACTIONS (2)
  - JOINT SPRAIN [None]
  - JOINT SWELLING [None]
